FAERS Safety Report 9222622 (Version 8)
Quarter: 2016Q3

REPORT INFORMATION
  Report Type: Spontaneous
  Country: US (occurrence: US)
  Receive Date: 20130410
  Receipt Date: 20160729
  Transmission Date: 20161109
  Serious: Yes (Hospitalization, Disabling, Other)
  Sender: FDA-Public Use
  Company Number: US-009507513-1304USA002755

PATIENT
  Sex: Male
  Weight: 70.3 kg

DRUGS (1)
  1. PROPECIA [Suspect]
     Active Substance: FINASTERIDE
     Indication: ANDROGENETIC ALOPECIA
     Dosage: 1 MG, UNK
     Route: 048
     Dates: start: 19991230, end: 2004

REACTIONS (18)
  - Suicide attempt [Unknown]
  - Dyskinesia [Unknown]
  - Treatment noncompliance [Unknown]
  - Sexual dysfunction [Not Recovered/Not Resolved]
  - Generalised anxiety disorder [Not Recovered/Not Resolved]
  - Depression [Not Recovered/Not Resolved]
  - Cognitive disorder [Not Recovered/Not Resolved]
  - Vision blurred [Unknown]
  - Ejaculation disorder [Not Recovered/Not Resolved]
  - Suicidal ideation [Unknown]
  - Erectile dysfunction [Not Recovered/Not Resolved]
  - Mental disorder [Not Recovered/Not Resolved]
  - Paraesthesia [Unknown]
  - Paranoia [Unknown]
  - Substance use [Recovered/Resolved]
  - Bipolar I disorder [Unknown]
  - Panic attack [Unknown]
  - Psychotic disorder [Unknown]

NARRATIVE: CASE EVENT DATE: 2000
